FAERS Safety Report 16243182 (Version 1)
Quarter: 2019Q2

REPORT INFORMATION
  Report Type: Spontaneous
  Country: US (occurrence: US)
  Receive Date: 20190425
  Receipt Date: 20190425
  Transmission Date: 20190711
  Serious: No
  Sender: FDA-Public Use
  Company Number: None

PATIENT
  Age: 36 Year
  Sex: Female
  Weight: 47.7 kg

DRUGS (5)
  1. BENADRYL [Concomitant]
     Active Substance: DIPHENHYDRAMINE HYDROCHLORIDE
  2. DEXTROAMPHET SACCHARAT, AMPHET ASPARTATE, DEXTROAMPHET SULFATE AND AMPHET SULFAT [Suspect]
     Active Substance: AMPHETAMINE ASPARTATE\AMPHETAMINE SULFATE\DEXTROAMPHETAMINE SACCHARATE\DEXTROAMPHETAMINE SULFATE
     Indication: ATTENTION DEFICIT/HYPERACTIVITY DISORDER
     Dosage: ?          QUANTITY:11 TABLET(S);?
     Route: 048
     Dates: start: 20190425, end: 20190425
  3. AMBIEN [Concomitant]
     Active Substance: ZOLPIDEM TARTRATE
  4. MULTIVITAMIN [Concomitant]
     Active Substance: VITAMINS
  5. ADDERALL [Concomitant]
     Active Substance: AMPHETAMINE ASPARTATE\AMPHETAMINE SULFATE\DEXTROAMPHETAMINE SACCHARATE\DEXTROAMPHETAMINE SULFATE

REACTIONS (5)
  - Product substitution issue [None]
  - Drug ineffective [None]
  - Malaise [None]
  - Intentional dose omission [None]
  - Emotional disorder [None]

NARRATIVE: CASE EVENT DATE: 20190425
